FAERS Safety Report 7267407-9 (Version None)
Quarter: 2011Q1

REPORT INFORMATION
  Report Type: 
  Country: None (occurrence: None)
  Receive Date: 20110201
  Receipt Date: 20101116
  Transmission Date: 20110831
  Serious: No
  Sender: FDA-Public Use
  Company Number: A0892858A

PATIENT

DRUGS (1)
  1. ARIXTRA [Suspect]
     Indication: FACTOR V LEIDEN MUTATION
     Route: 065

REACTIONS (2)
  - NIGHT SWEATS [None]
  - ILL-DEFINED DISORDER [None]
